FAERS Safety Report 6640716-X (Version None)
Quarter: 2010Q1

REPORT INFORMATION
  Report Type: 
  Country: None (occurrence: None)
  Receive Date: 20100318
  Receipt Date: 20100305
  Transmission Date: 20100710
  Serious: Yes (Hospitalization)
  Sender: FDA-Public Use
  Company Number: US-ELI_LILLY_AND_COMPANY-US200908006000

PATIENT
  Sex: Male
  Weight: 340 kg

DRUGS (21)
  1. BYETTA [Suspect]
     Dosage: 10 UG, 2/D
     Dates: start: 20051201
  2. BYETTA [Suspect]
     Dosage: 5 UG, 2/D
     Dates: start: 20060107, end: 20071101
  3. ENBREL [Concomitant]
     Dosage: 50 MG, WEEKLY (1/W)
  4. ACTOS [Concomitant]
     Indication: DIABETES MELLITUS
     Dosage: 45 MG, DAILY (1/D)
  5. AMARYL [Concomitant]
     Indication: DIABETES MELLITUS
     Dosage: 4 MG, DAILY (1/D)
  6. ZOCOR [Concomitant]
     Indication: BLOOD CHOLESTEROL INCREASED
     Dosage: 20 MG, DAILY (1/D)
  7. ALLOPURINOL [Concomitant]
     Dosage: 200 MG, UNK
  8. DIAZEPAM [Concomitant]
     Indication: ANXIETY
     Dates: start: 20061101, end: 20061201
  9. FOSAMAX [Concomitant]
     Dosage: UNK, WEEKLY (1/W)
  10. ANDROGEL [Concomitant]
     Indication: HORMONE REPLACEMENT THERAPY
     Dosage: UNK, DAILY (1/D)
  11. METOLAZONE [Concomitant]
     Indication: HYPERTENSION
     Dosage: 5 MG, QOD
  12. DEMADEX [Concomitant]
  13. OXYCONTIN [Concomitant]
     Dosage: 80 MG, EACH EVENING
  14. OXYCONTIN [Concomitant]
     Dosage: 100 MG, OTHER
  15. ALLEGRA [Concomitant]
     Dosage: 180 MG, DAILY (1/D)
  16. VITAMIN B COMPLEX CAP [Concomitant]
     Dosage: 50 MG, DAILY (1/D)
  17. VITAMIN D [Concomitant]
     Dosage: 400 IU, DAILY (1/D)
  18. LISINOPRIL [Concomitant]
     Dosage: 5 MG, 2/D
  19. FISH OIL [Concomitant]
  20. CALCIUM [Concomitant]
     Dosage: 600 MG, UNK
  21. ASPIRIN [Concomitant]
     Dosage: 81 MG, DAILY (1/D)

REACTIONS (3)
  - BLOOD CREATININE INCREASED [None]
  - BLOOD UREA INCREASED [None]
  - PANCREATITIS ACUTE [None]
